FAERS Safety Report 8461479-1 (Version None)
Quarter: 2012Q2

REPORT INFORMATION
  Report Type: 
  Country: None (occurrence: None)
  Receive Date: 20120625
  Receipt Date: 20120614
  Transmission Date: 20120825
  Serious: Yes (Hospitalization)
  Sender: FDA-Public Use
  Company Number: US-JNJFOC-20120205317

PATIENT
  Sex: Female
  Weight: 67.3 kg

DRUGS (7)
  1. MESALAMINE [Concomitant]
     Route: 048
  2. REMICADE [Suspect]
     Indication: IRRITABLE BOWEL SYNDROME
     Route: 042
  3. NEXIUM [Concomitant]
  4. HUMIRA [Concomitant]
     Dates: start: 20110818
  5. ACETAMINOPHEN [Concomitant]
  6. MULTI-VITAMINS [Concomitant]
  7. MOTRIN [Concomitant]

REACTIONS (1)
  - COLITIS ULCERATIVE [None]
